FAERS Safety Report 5862592-5 (Version None)
Quarter: 2008Q3

REPORT INFORMATION
  Report Type: 
  Country: None (occurrence: None)
  Receive Date: 20080827
  Receipt Date: 20080827
  Transmission Date: 20090109
  Serious: No
  Sender: FDA-Public Use
  Company Number: None

PATIENT
  Age: 45 Year
  Sex: Male
  Weight: 81.2 kg

DRUGS (1)
  1. PENTOTHAL [Suspect]
     Indication: ELECTROCONVULSIVE THERAPY
     Dosage: 250 MG  OTD  IV
     Route: 042
     Dates: start: 20080825, end: 20080825

REACTIONS (1)
  - DRUG INEFFECTIVE [None]
